FAERS Safety Report 6053345-6 (Version None)
Quarter: 2009Q1

REPORT INFORMATION
  Report Type: 
  Country: None (occurrence: None)
  Receive Date: 20090127
  Receipt Date: 20090123
  Transmission Date: 20090719
  Serious: Yes (Other)
  Sender: FDA-Public Use
  Company Number: D0060010A

PATIENT
  Age: 72 Year
  Sex: Male
  Weight: 72 kg

DRUGS (1)
  1. LAMICTAL [Suspect]
     Dosage: 25MG PER DAY
     Route: 065

REACTIONS (1)
  - LYMPHOMA [None]
